FAERS Safety Report 8375647-0 (Version None)
Quarter: 2012Q2

REPORT INFORMATION
  Report Type: 
  Country: None (occurrence: None)
  Receive Date: 20120522
  Receipt Date: 20120516
  Transmission Date: 20120825
  Serious: No
  Sender: FDA-Public Use
  Company Number: US-PFIZER INC-2012119373

PATIENT
  Sex: Male
  Weight: 81.633 kg

DRUGS (6)
  1. IBUPROFEN [Concomitant]
     Indication: HYPOTONIA
     Dosage: 200 MG, 2X/WEEK
  2. ASPIRIN [Concomitant]
     Indication: CARDIAC DISORDER
     Dosage: 81 MG, DAILY
  3. VIAGRA [Suspect]
     Indication: ERECTILE DYSFUNCTION
     Dosage: 25 MG, DAILY
  4. RANEXA [Concomitant]
     Indication: CARDIAC DISORDER
     Dosage: 500 MG, 2X/DAY
  5. LOVAZA [Concomitant]
     Indication: CARDIAC DISORDER
     Dosage: 1 G, 2X/DAY
  6. ENALAPRIL [Concomitant]
     Indication: CARDIAC DISORDER
     Dosage: 2.5 MG, DAILY

REACTIONS (1)
  - EJACULATION DISORDER [None]
